FAERS Safety Report 8974855 (Version 1)
Quarter: 2012Q4

REPORT INFORMATION
  Report Type: 
  Country: JP (occurrence: JP)
  Receive Date: 20121219
  Receipt Date: 20121219
  Transmission Date: 20130627
  Serious: Yes (Other)
  Sender: FDA-Public Use
  Company Number: JP-BAXTER-2012BAX028026

PATIENT
  Age: 62 Year
  Sex: Female

DRUGS (7)
  1. CYCLOPHOSPHAMIDE FOR INJECTION, USP [Suspect]
     Indication: BREAST CANCER
     Dosage: 4 CYCLES (TOTAL DOSE)
  2. DOXORUBICIN HYDROCHLORIDE [Suspect]
     Indication: BREAST CANCER
     Dosage: TOTAL DOSE
  3. 5-FLUOROURACIL [Suspect]
     Indication: BREAST CANCER
     Dosage: TOTAL DOSE
  4. PACLITAXEL [Suspect]
     Indication: BREAST CANCER
     Dosage: 12 CYCLES (TOTAL DOSE)
  5. TAMOXIFEN [Suspect]
     Indication: BREAST CANCER
     Dosage: 44 MONTHS
  6. ANASTROZOLE [Suspect]
     Indication: BREAST CANCER
     Dosage: 26 MONTHS
  7. EXEMESTANE [Suspect]
     Indication: BREAST CANCER

REACTIONS (1)
  - Myelodysplastic syndrome [Unknown]
